FAERS Safety Report 16213861 (Version 6)
Quarter: 2020Q4

REPORT INFORMATION
  Report Type: Report from Study
  Country: DE (occurrence: DE)
  Receive Date: 20190418
  Receipt Date: 20201207
  Transmission Date: 20210113
  Serious: Yes (Life-Threatening, Hospitalization, Other)
  Sender: FDA-Public Use
  Company Number: DE-BRISTOL-MYERS SQUIBB COMPANY-BMS-2019-034387

PATIENT
  Age: 52 Year
  Sex: Male
  Weight: 65 kg

DRUGS (37)
  1. HYDROXYUREA. [Suspect]
     Active Substance: HYDROXYUREA
     Dosage: 785.7 MILLIGRAM, QD
     Route: 065
     Dates: start: 20181013, end: 20181023
  2. JAKAVI [RUXOLITINIB] [Suspect]
     Active Substance: RUXOLITINIB
     Indication: MYELODYSPLASTIC SYNDROME
     Dosage: 15 MILLIGRAM, BID
     Route: 065
     Dates: start: 20181003, end: 20181018
  3. EXJADE [Suspect]
     Active Substance: DEFERASIROX
     Indication: PRIMARY MYELOFIBROSIS
     Dosage: 21 MILLIGRAM/KILOGRAM
     Route: 065
     Dates: start: 20180810, end: 20190123
  4. TORASEMIDE [Concomitant]
     Active Substance: TORSEMIDE
     Indication: RHEUMATOID ARTHRITIS
     Dosage: 10 MILLIGRAM, QD
     Route: 065
     Dates: start: 201805
  5. JAKAVI [RUXOLITINIB] [Suspect]
     Active Substance: RUXOLITINIB
     Dosage: 15 MILLIGRAM, BID
     Route: 065
     Dates: start: 20180103, end: 20180118
  6. HYDROXYCARBAMIDE [Suspect]
     Active Substance: HYDROXYUREA
     Indication: PRIMARY MYELOFIBROSIS
     Dosage: 500 MILLIGRAM, BID
     Route: 065
     Dates: start: 201805, end: 20190711
  7. ENBREL [Concomitant]
     Active Substance: ETANERCEPT
     Indication: RHEUMATOID ARTHRITIS
     Dosage: 7.14 MILLIGRAM, Q2WK
     Route: 065
     Dates: start: 201805, end: 20180902
  8. PREDNISOLONE. [Concomitant]
     Active Substance: PREDNISOLONE
     Dosage: 7.5 MILLIGRAM,  EVERY 2 DAYS
     Route: 065
     Dates: start: 20180903
  9. NOVAMINSULFON [Concomitant]
     Active Substance: METAMIZOLE
     Indication: PROPHYLAXIS
     Dosage: 2215 MILLIGRAM, QD, 553.75 MG, QID (MAX 2250 MG X 4 TIMES DAY)
     Route: 065
     Dates: start: 20190429
  10. HYDROXYUREA. [Suspect]
     Active Substance: HYDROXYUREA
     Dosage: 1500 MILLIGRAM, QD
     Route: 065
     Dates: start: 20190509, end: 20190519
  11. PANTOPRAZOLE [Concomitant]
     Active Substance: PANTOPRAZOLE
     Indication: PROPHYLAXIS
     Dosage: 40 MILLIGRAM, QD
     Route: 065
     Dates: start: 201805
  12. TORASEMIDE [Concomitant]
     Active Substance: TORSEMIDE
     Dosage: 7.5 MILLIGRAM, QOD
     Route: 065
     Dates: start: 20180903
  13. MACROGOL [Concomitant]
     Active Substance: POLYETHYLENE GLYCOLS
     Indication: LARGE INTESTINAL OBSTRUCTION
     Dosage: 13.7 GRAM
     Route: 065
     Dates: start: 201805
  14. NOVAMINSULFON [Concomitant]
     Active Substance: METAMIZOLE
     Dosage: 500 MILLIGRAM, QD
     Route: 065
     Dates: start: 20190416, end: 20190428
  15. HYDROXYUREA. [Suspect]
     Active Substance: HYDROXYUREA
     Indication: MYELODYSPLASTIC SYNDROME
     Dosage: 500 MILLIGRAM, BID
     Route: 065
     Dates: start: 20180907, end: 20180916
  16. HYDROXYUREA. [Suspect]
     Active Substance: HYDROXYUREA
     Dosage: 1000 MILLIGRAM, BID
     Route: 065
     Dates: start: 20190520, end: 20190616
  17. PREDNISOLONE. [Concomitant]
     Active Substance: PREDNISOLONE
     Dosage: 2.5 MILLIGRAM
     Route: 065
     Dates: start: 20190409
  18. HYDROXYUREA. [Suspect]
     Active Substance: HYDROXYUREA
     Dosage: 1500 MILLIGRAM, QD
     Route: 065
     Dates: start: 20180923, end: 20180924
  19. HYDROXYUREA. [Suspect]
     Active Substance: HYDROXYUREA
     Dosage: 500 MILLIGRAM, BID
     Route: 065
     Dates: start: 20190625, end: 20190703
  20. JAKAVI [RUXOLITINIB] [Suspect]
     Active Substance: RUXOLITINIB
     Dosage: 10 MILLIGRAM, BID
     Route: 065
     Dates: start: 20190119
  21. EXJADE [Suspect]
     Active Substance: DEFERASIROX
     Indication: MYELODYSPLASTIC SYNDROME
     Dosage: 26.5 MILLIGRAM/KILOGRAM
     Route: 065
     Dates: start: 20190124
  22. HYDROXYUREA. [Suspect]
     Active Substance: HYDROXYUREA
     Indication: PRIMARY MYELOFIBROSIS
     Dosage: 500 MILLIGRAM, QD
     Route: 065
     Dates: start: 201805, end: 20180906
  23. HYDROXYUREA. [Suspect]
     Active Substance: HYDROXYUREA
     Dosage: 500 MILLIGRAM, BID
     Route: 065
     Dates: start: 20180925, end: 20181011
  24. HYDROXYUREA. [Suspect]
     Active Substance: HYDROXYUREA
     Dosage: 500 MILLIGRAM, BID
     Route: 065
     Dates: start: 20181024, end: 20190304
  25. HYDROXYUREA. [Suspect]
     Active Substance: HYDROXYUREA
     Dosage: 1200 MG, 3DAYS AND 1000 MG 4 DAYS
     Route: 065
     Dates: start: 20190704, end: 20190711
  26. JAKAVI [RUXOLITINIB] [Suspect]
     Active Substance: RUXOLITINIB
     Indication: PRIMARY MYELOFIBROSIS
     Dosage: 40 MILLIGRAM, QD
     Route: 065
     Dates: start: 201805, end: 20181002
  27. JAKAVI [RUXOLITINIB] [Suspect]
     Active Substance: RUXOLITINIB
     Dosage: 20 MILLIGRAM, QD
     Route: 065
     Dates: start: 20181019
  28. EXJADE [Suspect]
     Active Substance: DEFERASIROX
     Dosage: 21 UNK
     Route: 065
     Dates: start: 20180910, end: 20190123
  29. HYDROXYCARBAMIDE [Suspect]
     Active Substance: HYDROXYUREA
     Indication: MYELODYSPLASTIC SYNDROME
  30. FRESUBIN ENERGY [CARBOHYDRATES NOS;FATS NOS;MINERALS NOS;PROTEINS NOS; [Concomitant]
     Indication: CACHEXIA
     Dosage: 2 DOSAGE FORM, QD
     Route: 065
     Dates: start: 201805
  31. HYDROXYUREA. [Suspect]
     Active Substance: HYDROXYUREA
     Dosage: 500 MILLIGRAM, QD
     Route: 065
     Dates: start: 20180917, end: 20180922
  32. HYDROXYUREA. [Suspect]
     Active Substance: HYDROXYUREA
     Dosage: 1500 MILLIGRAM
     Route: 065
     Dates: start: 20190712
  33. ALLOPURINOL. [Concomitant]
     Active Substance: ALLOPURINOL
     Indication: PROPHYLAXIS
     Dosage: 100 MILLIGRAM, QD
     Route: 065
     Dates: start: 201805
  34. HYDROXYUREA. [Suspect]
     Active Substance: HYDROXYUREA
     Dosage: 1000 MILLIGRAM, BID
     Route: 065
     Dates: start: 20190305, end: 20190408
  35. HYDROXYUREA. [Suspect]
     Active Substance: HYDROXYUREA
     Dosage: 500 MILLIGRAM, BID
     Route: 065
     Dates: start: 20190508
  36. HYDROXYUREA. [Suspect]
     Active Substance: HYDROXYUREA
     Dosage: 1500 MILLIGRAM, QD
     Route: 065
     Dates: start: 20190617, end: 20190624
  37. PREDNISOLONE. [Concomitant]
     Active Substance: PREDNISOLONE
     Indication: RHEUMATOID ARTHRITIS
     Dosage: 5 MILLIGRAM, QD
     Route: 065
     Dates: start: 201805, end: 20180902

REACTIONS (18)
  - C-reactive protein increased [Unknown]
  - Compartment syndrome [Unknown]
  - Back pain [Unknown]
  - Blood urea increased [Unknown]
  - Hyperleukocytosis [Recovering/Resolving]
  - C-reactive protein decreased [Unknown]
  - Blood lactate dehydrogenase increased [Unknown]
  - Anaemia [Recovering/Resolving]
  - Decubitus ulcer [Unknown]
  - Wound infection [Unknown]
  - Blood bilirubin increased [Unknown]
  - Thrombocytopenia [Not Recovered/Not Resolved]
  - Concomitant disease aggravated [Not Recovered/Not Resolved]
  - Infection [Recovered/Resolved]
  - Serum ferritin increased [Unknown]
  - Leukocytosis [Not Recovered/Not Resolved]
  - Blood uric acid increased [Unknown]
  - Blood folate decreased [Unknown]

NARRATIVE: CASE EVENT DATE: 20180206
